FAERS Safety Report 18776518 (Version 4)
Quarter: 2021Q1

REPORT INFORMATION
  Report Type: Spontaneous
  Country: ES (occurrence: ES)
  Receive Date: 20210122
  Receipt Date: 20210305
  Transmission Date: 20210419
  Serious: Yes (Hospitalization, Other)
  Sender: FDA-Public Use
  Company Number: ES-PFIZER INC-2021027097

PATIENT
  Sex: Female

DRUGS (13)
  1. SPIRIVA [Suspect]
     Active Substance: TIOTROPIUM BROMIDE MONOHYDRATE
     Dosage: UNK (1?0?0)
     Route: 065
  2. OPIREN FLAS [Suspect]
     Active Substance: LANSOPRAZOLE
     Dosage: UNK (1?0?0)
     Route: 065
  3. ALDACTONE [Suspect]
     Active Substance: SPIRONOLACTONE
     Dosage: UNK (0?1/2?0)
     Route: 065
  4. ACETAMINOPHEN;CODEINE [Suspect]
     Active Substance: ACETAMINOPHEN\CODEINE PHOSPHATE
     Indication: PAIN
     Dosage: 2?2?2
     Route: 065
  5. EMCONCOR [Suspect]
     Active Substance: BISOPROLOL FUMARATE
     Dosage: UNK (1?0?1)
     Route: 065
  6. LIVAZO [Suspect]
     Active Substance: PITAVASTATIN CALCIUM
     Dosage: UNK (0?0?1)
     Route: 065
  7. ORFIDAL [Suspect]
     Active Substance: LORAZEPAM
     Dosage: 1?0?1
     Route: 065
  8. METAMIZOLE [Suspect]
     Active Substance: METAMIZOLE
     Indication: PAIN
     Dosage: UNK (1?1?1)
     Route: 065
  9. DONEPEZIL HCL [Suspect]
     Active Substance: DONEPEZIL HYDROCHLORIDE
     Dosage: 1?0?0
     Route: 065
  10. SEGURIL [Suspect]
     Active Substance: FUROSEMIDE
     Dosage: UNK (1?0?0)
     Route: 065
  11. FORMODUAL [Suspect]
     Active Substance: BECLOMETHASONE DIPROPIONATE\FORMOTEROL FUMARATE
     Dosage: UNK (2?0?2)
     Route: 065
  12. STILNOX [Suspect]
     Active Substance: ZOLPIDEM TARTRATE
     Dosage: UNK (0?0?1 1/2)
     Route: 065
  13. ZALDIAR [Suspect]
     Active Substance: ACETAMINOPHEN\TRAMADOL HYDROCHLORIDE
     Indication: PAIN
     Dosage: UNK (1?1?1)
     Route: 065

REACTIONS (2)
  - Syncope [Recovered/Resolved]
  - Treatment noncompliance [Recovered/Resolved]
